FAERS Safety Report 6686269-1 (Version None)
Quarter: 2010Q2

REPORT INFORMATION
  Report Type: 
  Country: None (occurrence: None)
  Receive Date: 20100419
  Receipt Date: 20100413
  Transmission Date: 20101027
  Serious: Yes (Hospitalization)
  Sender: FDA-Public Use
  Company Number: JP-BAYER-201011293BYL

PATIENT
  Age: 71 Year
  Sex: Female

DRUGS (7)
  1. NEXAVAR [Suspect]
     Indication: HEPATIC NEOPLASM MALIGNANT
     Dosage: TOTAL DAILY DOSE: 800 MG  UNIT DOSE: 200 MG
     Route: 048
     Dates: start: 20100226, end: 20100303
  2. NEXAVAR [Suspect]
     Dosage: UNIT DOSE: 200 MG
     Route: 048
     Dates: start: 20100209, end: 20100312
  3. NEXAVAR [Suspect]
     Dosage: UNIT DOSE: 200 MG
     Route: 048
     Dates: start: 20100213, end: 20100315
  4. NEXAVAR [Suspect]
     Dosage: UNIT DOSE: 200 MG
     Route: 048
     Dates: start: 20100223
  5. URSO 250 [Concomitant]
     Dosage: TOTAL DAILY DOSE: 600 MG
     Route: 048
  6. AMLODIPINE [Concomitant]
     Dosage: TOTAL DAILY DOSE: 2.5 MG
     Route: 048
  7. KATIV-N [Concomitant]
     Dosage: TOTAL DAILY DOSE: 5 MG
     Route: 048

REACTIONS (1)
  - PANCYTOPENIA [None]
